FAERS Safety Report 5235694-4 (Version None)
Quarter: 2007Q1

REPORT INFORMATION
  Report Type: 
  Country: None (occurrence: None)
  Receive Date: 20061208
  Receipt Date: 20060104
  Transmission Date: 20070707
  Serious: Yes (Other)
  Sender: FDA-Public Use
  Company Number: 2005UW17667

PATIENT
  Age: 72 Year
  Sex: Female

DRUGS (4)
  1. CRESTOR [Suspect]
     Indication: BLOOD CHOLESTEROL INCREASED
     Dosage: 5 MG PO
     Route: 048
     Dates: start: 20041118, end: 20051120
  2. DETROL [Concomitant]
  3. HYDROCODONE [Concomitant]
  4. RHINOCORT [Concomitant]

REACTIONS (3)
  - CHROMATURIA [None]
  - URINE ABNORMALITY [None]
  - URINE ODOUR ABNORMAL [None]
